FAERS Safety Report 5492399-2 (Version None)
Quarter: 2007Q4

REPORT INFORMATION
  Report Type: 
  Country: None (occurrence: None)
  Receive Date: 20071022
  Receipt Date: 20071018
  Transmission Date: 20080405
  Serious: Yes (Hospitalization)
  Sender: FDA-Public Use
  Company Number: US-BRISTOL-MYERS SQUIBB COMPANY-13947312

PATIENT
  Sex: Male

DRUGS (1)
  1. ORENCIA [Suspect]

REACTIONS (3)
  - ARTHRALGIA [None]
  - PERICARDIAL EFFUSION [None]
  - PULMONARY OEDEMA [None]
